FAERS Safety Report 4859307-6 (Version None)
Quarter: 2005Q4

REPORT INFORMATION
  Report Type: 
  Country: None (occurrence: None)
  Receive Date: 20051219
  Receipt Date: 20041112
  Transmission Date: 20060501
  Serious: No
  Sender: FDA-Public Use
  Company Number: US-GLAXOSMITHKLINE-A0533686A

PATIENT
  Age: 64 Year

DRUGS (3)
  1. NICODERM CQ [Suspect]
  2. RUBBING ALCOHOL (ISOPROPYL ALCOHOL) [Concomitant]
  3. ALCOHOL [Concomitant]

REACTIONS (3)
  - APPLICATION SITE ERYTHEMA [None]
  - APPLICATION SITE PRURITUS [None]
  - APPLICATION SITE SWELLING [None]
